FAERS Safety Report 4751517-1 (Version None)
Quarter: 2005Q3

REPORT INFORMATION
  Report Type: 
  Country: None (occurrence: None)
  Receive Date: 20050823
  Receipt Date: 20050823
  Transmission Date: 20060218
  Serious: Yes (Hospitalization)
  Sender: FDA-Public Use
  Company Number: None

PATIENT
  Age: 39 Year
  Sex: Male
  Weight: 95 kg

DRUGS (3)
  1. IFOSFAMIDE [Suspect]
     Indication: LIPOSARCOMA
     Dosage: SEE IMAGE
     Route: 042
     Dates: start: 20050616, end: 20050617
  2. IFOSFAMIDE [Suspect]
     Indication: LIPOSARCOMA
     Dosage: SEE IMAGE
     Route: 042
     Dates: start: 20050613, end: 20050619
  3. . [Concomitant]

REACTIONS (5)
  - ABDOMINAL PAIN [None]
  - CHILLS [None]
  - CYSTITIS [None]
  - DYSURIA [None]
  - PYREXIA [None]
